FAERS Safety Report 17014965 (Version 1)
Quarter: 2019Q4

REPORT INFORMATION
  Report Type: Spontaneous
  Country: US (occurrence: US)
  Receive Date: 20191108
  Receipt Date: 20191108
  Transmission Date: 20200122
  Serious: Yes (Disabling)
  Sender: FDA-Public Use
  Company Number: None

PATIENT
  Age: 40 Year
  Sex: Male
  Weight: 81.9 kg

DRUGS (4)
  1. TRAZODONE [Suspect]
     Active Substance: TRAZODONE HYDROCHLORIDE
     Indication: INSOMNIA
     Route: 048
     Dates: start: 20190729, end: 20190808
  2. OXCARBAZEPINE 150MG PO BID [Concomitant]
     Dates: start: 20190724, end: 20190808
  3. TRAZODONE [Suspect]
     Active Substance: TRAZODONE HYDROCHLORIDE
     Indication: INSOMNIA
     Route: 048
     Dates: start: 20190718, end: 20190728
  4. NICOTINE PATCH 21 MG TD [Concomitant]
     Dates: start: 20190725, end: 20190808

REACTIONS (1)
  - Priapism [None]

NARRATIVE: CASE EVENT DATE: 20190809
